FAERS Safety Report 4360849-0 (Version None)
Quarter: 2004Q2

REPORT INFORMATION
  Report Type: 
  Country: None (occurrence: None)
  Receive Date: 20040517
  Receipt Date: 20040512
  Transmission Date: 20050107
  Serious: Yes (Other)
  Sender: FDA-Public Use
  Company Number: ITWYE714221APR04

PATIENT
  Age: 43 Year
  Sex: Female

DRUGS (2)
  1. EFFEXOR [Suspect]
     Indication: DEPRESSION
     Dosage: 150 MG 1 X PER 1 DAY
     Route: 048
     Dates: start: 20031001
  2. MEDROXYPROGESTERONE ACETATE [Concomitant]

REACTIONS (1)
  - METRORRHAGIA [None]
